FAERS Safety Report 4963591-8 (Version None)
Quarter: 2006Q1

REPORT INFORMATION
  Report Type: 
  Country: None (occurrence: None)
  Receive Date: 20060330
  Receipt Date: 20060323
  Transmission Date: 20060701
  Serious: Yes (Hospitalization)
  Sender: FDA-Public Use
  Company Number: FRWYE480017MAR06

PATIENT
  Age: 65 Year
  Sex: Male

DRUGS (5)
  1. EFFEXOR XR [Suspect]
     Indication: DEPRESSION
     Dosage: SEE IMAGE
     Route: 048
     Dates: start: 20060301, end: 20060301
  2. EFFEXOR XR [Suspect]
     Indication: DEPRESSION
     Dosage: SEE IMAGE
     Route: 048
     Dates: end: 20060301
  3. DAFLON (DIOSMIN) [Concomitant]
  4. ESBERIVEN (MELILOT/RUTOSIDE) [Concomitant]
  5. PREVISCAN (FLUINDIONE) [Concomitant]

REACTIONS (4)
  - ANAEMIA [None]
  - GASTRITIS EROSIVE [None]
  - MELAENA [None]
  - SMALL INTESTINE CARCINOMA [None]
